FAERS Safety Report 12597568 (Version 1)
Quarter: 2016Q3

REPORT INFORMATION
  Report Type: Spontaneous
  Country: US (occurrence: None)
  Receive Date: 20160726
  Receipt Date: 20160726
  Transmission Date: 20161109
  Serious: Yes (Disabling)
  Sender: FDA-Public Use
  Company Number: None

PATIENT
  Age: 70 Year
  Sex: Female
  Weight: 90.72 kg

DRUGS (13)
  1. ESTROGEN [Concomitant]
     Active Substance: ESTRONE\SUS SCROFA OVARY
  2. SERTRALINE [Concomitant]
     Active Substance: SERTRALINE HYDROCHLORIDE
  3. DEXILANT [Concomitant]
     Active Substance: DEXLANSOPRAZOLE
  4. CO-Q10 [Concomitant]
  5. AMLODIPINE, 2.5 MG, CAMBER [Suspect]
     Active Substance: AMLODIPINE BESYLATE
     Indication: BLOOD PRESSURE MEASUREMENT
     Dosage: 2 TABLET(S) TWICE A DAY TAKEN BY MOUTH
     Route: 048
     Dates: start: 20140401, end: 20160711
  6. CALCIUM/MAGNESIUM [Concomitant]
  7. VITAMIN D [Concomitant]
     Active Substance: CHOLECALCIFEROL
  8. LEVOTHYROXINE. [Concomitant]
     Active Substance: LEVOTHYROXINE
  9. FLAXSEED [Concomitant]
     Active Substance: FLAX SEED
  10. PROBIOTIC [Concomitant]
     Active Substance: PROBIOTICS NOS
  11. MAGNESIUM [Concomitant]
     Active Substance: MAGNESIUM
  12. LISINOPRIL. [Concomitant]
     Active Substance: LISINOPRIL
  13. GABAPENTIN. [Concomitant]
     Active Substance: GABAPENTIN

REACTIONS (3)
  - Gingival bleeding [None]
  - Gingival disorder [None]
  - Ulcer [None]

NARRATIVE: CASE EVENT DATE: 20140401
